FAERS Safety Report 6230166-2 (Version None)
Quarter: 2009Q2

REPORT INFORMATION
  Report Type: 
  Country: None (occurrence: None)
  Receive Date: 20090615
  Receipt Date: 20090609
  Transmission Date: 20091009
  Serious: Yes (Death, Hospitalization, Other)
  Sender: FDA-Public Use
  Company Number: PHHY2009BR22816

PATIENT
  Sex: Male

DRUGS (4)
  1. EXFORGE [Suspect]
     Indication: HYPERTENSION
     Dosage: 160/5 MG
  2. EXELON [Suspect]
     Indication: MEMORY IMPAIRMENT
     Dosage: 2 CAPSULES DAILY
     Route: 048
  3. EXELON [Suspect]
  4. MODURETIC 5-50 [Concomitant]
     Indication: HYPERTENSION
     Dosage: 1 TABLET IN MORNING
     Route: 048

REACTIONS (12)
  - AORTIC DILATATION [None]
  - AORTIC DISSECTION [None]
  - CARDIAC ARREST [None]
  - CARDIAC PACEMAKER INSERTION [None]
  - CATHETERISATION CARDIAC [None]
  - CHEST PAIN [None]
  - DIABETES MELLITUS [None]
  - DYSPNOEA [None]
  - MUSCULAR WEAKNESS [None]
  - PAIN IN EXTREMITY [None]
  - PERIPHERAL COLDNESS [None]
  - POLYNEUROPATHY [None]
